FAERS Safety Report 9366628 (Version 1)
Quarter: 2013Q2

REPORT INFORMATION
  Report Type: Report from Study
  Country: IN (occurrence: IN)
  Receive Date: 20130625
  Receipt Date: 20130625
  Transmission Date: 20140414
  Serious: Yes (Death)
  Sender: FDA-Public Use
  Company Number: IN-BRISTOL-MYERS SQUIBB COMPANY-19020429

PATIENT
  Age: 43 Year
  Sex: Male

DRUGS (1)
  1. SPRYCEL (CML) TABS 50 MG [Suspect]
     Indication: CHRONIC MYELOID LEUKAEMIA
     Dates: start: 20130319, end: 20130525

REACTIONS (2)
  - Tuberculosis of central nervous system [Fatal]
  - Malignant neoplasm progression [Fatal]
